FAERS Safety Report 15135430 (Version 2)
Quarter: 2018Q3

REPORT INFORMATION
  Report Type: Spontaneous
  Country: US (occurrence: US)
  Receive Date: 20180712
  Receipt Date: 20180809
  Transmission Date: 20181010
  Serious: Yes (Other)
  Sender: FDA-Public Use
  Company Number: US-JNJFOC-20180709202

PATIENT
  Age: 70 Year
  Sex: Female
  Weight: 47.17 kg

DRUGS (1)
  1. PANCREAZE [Suspect]
     Active Substance: PANCRELIPASE AMYLASE\PANCRELIPASE LIPASE\PANCRELIPASE PROTEASE
     Indication: PANCREATIC FAILURE
     Dosage: 21000 UNITS OF LIPASE, 54700 UNITS OF PROTEASE, 83900 UNITS OF AMYLASE
     Route: 048
     Dates: start: 2001

REACTIONS (5)
  - Oesophageal carcinoma [Unknown]
  - Underdose [Unknown]
  - Product expiration date issue [Unknown]
  - Dysphagia [Unknown]
  - Wrong technique in product usage process [Unknown]

NARRATIVE: CASE EVENT DATE: 201801
